FAERS Safety Report 9157713 (Version 1)
Quarter: 2013Q1

REPORT INFORMATION
  Report Type: Spontaneous
  Country: FR (occurrence: None)
  Receive Date: 20130212
  Receipt Date: 20130212
  Transmission Date: 20140127
  Serious: Yes (Hospitalization)
  Sender: FDA-Public Use
  Company Number: 2013000018

PATIENT
  Age: 69 Year
  Sex: Male

DRUGS (8)
  1. ACEON (PERINDOPRIL ERBUMINE) TABLET [Suspect]
     Dosage: UNK, ORAL
     Route: 048
     Dates: start: 2011, end: 20121012
  2. MECIR (TAMSULOSIN HYDROCHLORIDE) [Concomitant]
  3. PERMIXON (SERENOA REPENS) [Concomitant]
  4. LERCANIDIPINE (LERCANIDIPINE) [Concomitant]
  5. INIPOMP (PANTOPRAZOLE SODIUM) [Concomitant]
  6. KARDEGIC (ACETYLSALICYLATE SODIUM) [Concomitant]
  7. SPIRIVA (TIOTROPIUM BROMIDE) [Concomitant]
  8. SYMBICORT [Concomitant]

REACTIONS (7)
  - Abdominal distension [None]
  - Macroglossia [None]
  - Lip oedema [None]
  - Respiratory disorder [None]
  - Angioedema [None]
  - Gastrointestinal motility disorder [None]
  - Abdominal distension [None]
